FAERS Safety Report 9361775 (Version 1)
Quarter: 2013Q2

REPORT INFORMATION
  Report Type: Spontaneous
  Country: BR (occurrence: BR)
  Receive Date: 20130621
  Receipt Date: 20130621
  Transmission Date: 20140414
  Serious: Yes (Life-Threatening, Other)
  Sender: FDA-Public Use
  Company Number: PHHY2013BR063006

PATIENT
  Sex: Female
  Weight: 76 kg

DRUGS (4)
  1. APRESOLIN [Suspect]
     Indication: HYPERTENSION
     Dosage: 2 DF (25 MG) DAILY
     Route: 048
     Dates: end: 201303
  2. LOSARTAN [Suspect]
     Indication: HYPERTENSION
     Dosage: 2 DF (50 MG) QD
     Route: 048
  3. AMLODIPINE [Suspect]
     Indication: HYPERTENSION
     Dosage: 2 DF (5MG), DAILY
  4. FORMOTEROL W/BUDESONIDE [Concomitant]
     Indication: ASTHMA
     Dosage: 400MCG FORMO TWICE DAILY, 200MCG BUDESONIDE ONCE DAILY.

REACTIONS (8)
  - Feeling abnormal [Unknown]
  - Fatigue [Not Recovered/Not Resolved]
  - Asthma [Not Recovered/Not Resolved]
  - Dyspnoea [Not Recovered/Not Resolved]
  - Generalised oedema [Not Recovered/Not Resolved]
  - Heart rate increased [Not Recovered/Not Resolved]
  - Emotional disorder [Unknown]
  - Nervousness [Unknown]
